FAERS Safety Report 18461745 (Version 1)
Quarter: 2020Q4

REPORT INFORMATION
  Report Type: Spontaneous
  Country: US (occurrence: US)
  Receive Date: 20201103
  Receipt Date: 20201103
  Transmission Date: 20210114
  Serious: No
  Sender: FDA-Public Use
  Company Number: None

PATIENT
  Age: 69 Year
  Sex: Female

DRUGS (1)
  1. RIBAVIRIN TAB 200MG [Suspect]
     Active Substance: RIBAVIRIN
     Route: 048
     Dates: start: 202010, end: 202010

REACTIONS (4)
  - Loss of personal independence in daily activities [None]
  - Therapy cessation [None]
  - Amnesia [None]
  - Psychiatric symptom [None]

NARRATIVE: CASE EVENT DATE: 20201009
